FAERS Safety Report 11495848 (Version 1)
Quarter: 2015Q3

REPORT INFORMATION
  Report Type: Spontaneous
  Country: GB (occurrence: None)
  Receive Date: 20150911
  Receipt Date: 20150911
  Transmission Date: 20151125
  Serious: Yes (Other)
  Sender: FDA-Public Use
  Company Number: GB-MDT-ADR-2015-01763

PATIENT
  Age: 14 Year
  Sex: Female

DRUGS (1)
  1. BACLOFEN INTRATHECAL [Suspect]
     Active Substance: BACLOFEN
     Dosage: ^3 DF^

REACTIONS (11)
  - Dizziness [None]
  - Memory impairment [None]
  - Thinking abnormal [None]
  - Somnolence [None]
  - Confusional state [None]
  - Depression [None]
  - Paraesthesia [None]
  - Nightmare [None]
  - Headache [None]
  - Fatigue [None]
  - Euphoric mood [None]
